FAERS Safety Report 7403193-7 (Version None)
Quarter: 2011Q2

REPORT INFORMATION
  Report Type: 
  Country: None (occurrence: None)
  Receive Date: 20110408
  Receipt Date: 20110401
  Transmission Date: 20111010
  Serious: Yes (Hospitalization, Other)
  Sender: FDA-Public Use
  Company Number: US-ASTRAZENECA-2011SE18949

PATIENT
  Age: 1058 Month
  Sex: Female

DRUGS (1)
  1. VIMOVO [Suspect]
     Route: 048

REACTIONS (5)
  - LOSS OF CONSCIOUSNESS [None]
  - FEMUR FRACTURE [None]
  - HYPOTENSION [None]
  - BLOOD POTASSIUM DECREASED [None]
  - FALL [None]
